FAERS Safety Report 9019257 (Version 1)
Quarter: 2013Q1

REPORT INFORMATION
  Report Type: Spontaneous
  Country: CH (occurrence: CH)
  Receive Date: 20130118
  Receipt Date: 20130118
  Transmission Date: 20140127
  Serious: Yes (Life-Threatening, Hospitalization)
  Sender: FDA-Public Use
  Company Number: CH-WATSON-2012-23466

PATIENT
  Age: 77 Year
  Sex: Female

DRUGS (3)
  1. BISOPROLOL (UNKNOWN) [Suspect]
     Indication: ATRIAL FIBRILLATION
     Dosage: 5 MG, DAILY
     Route: 065
  2. VERAPAMIL HYDROCHLORIDE [Suspect]
     Indication: ATRIAL FIBRILLATION
     Dosage: 120 MG, DAILY
     Route: 065
  3. PHENPROCOUMON [Concomitant]
     Indication: ATRIAL FIBRILLATION
     Dosage: UNK, UNKNOWN
     Route: 065

REACTIONS (7)
  - Cardiogenic shock [Recovered/Resolved]
  - Weight decreased [None]
  - Tachycardia [None]
  - Renal failure acute [None]
  - International normalised ratio increased [None]
  - Continuous haemodiafiltration [None]
  - Hepatic function abnormal [None]
